FAERS Safety Report 5513027-3 (Version None)
Quarter: 2007Q4

REPORT INFORMATION
  Report Type: 
  Country: None (occurrence: None)
  Receive Date: 20071108
  Receipt Date: 20071030
  Transmission Date: 20080405
  Serious: Yes (Hospitalization)
  Sender: FDA-Public Use
  Company Number: WAES 0710NLD00049

PATIENT
  Age: 49 Year
  Sex: 0

DRUGS (4)
  1. TAB RALTEGRAVIR POTASSIUM UNK [Suspect]
     Dates: start: 20071022
  2. DARUNAVIR (+) RITONAVIR [Concomitant]
  3. EMTRICITABINE (+) TENOFOVIR DISO [Concomitant]
  4. ETRAVIRINE [Concomitant]

REACTIONS (1)
  - DYSPNOEA [None]
